FAERS Safety Report 9364009 (Version 1)
Quarter: 2013Q2

REPORT INFORMATION
  Report Type: Spontaneous
  Country: US (occurrence: None)
  Receive Date: 20130620
  Receipt Date: 20130620
  Transmission Date: 20140414
  Serious: Yes (Hospitalization, Other)
  Sender: FDA-Public Use
  Company Number: KV201300113

PATIENT
  Age: 32 Year
  Sex: Female

DRUGS (1)
  1. MAKENA [Suspect]
     Indication: PREMATURE DELIVERY
     Route: 030
     Dates: start: 201301, end: 2013

REACTIONS (5)
  - Premature rupture of membranes [None]
  - Premature delivery [None]
  - Gestational hypertension [None]
  - Gestational diabetes [None]
  - Exposure during pregnancy [None]
